FAERS Safety Report 4705462-8 (Version None)
Quarter: 2005Q3

REPORT INFORMATION
  Report Type: 
  Country: None (occurrence: None)
  Receive Date: 20050701
  Receipt Date: 20050628
  Transmission Date: 20060218
  Serious: Yes (Other)
  Sender: FDA-Public Use
  Company Number: 200515990GDDC

PATIENT
  Age: 43 Year
  Sex: Male
  Weight: 78 kg

DRUGS (2)
  1. LANTUS [Suspect]
     Indication: DIABETES MELLITUS
     Route: 058
     Dates: start: 20040415
  2. NOVORAPID [Concomitant]
     Indication: DIABETES MELLITUS
     Dosage: DOSE UNIT: UNITS
     Route: 058
     Dates: start: 20040101

REACTIONS (2)
  - MYALGIA [None]
  - NEUROPATHY [None]
